FAERS Safety Report 19690238 (Version 1)
Quarter: 2021Q3

REPORT INFORMATION
  Report Type: Spontaneous
  Country: US (occurrence: US)
  Receive Date: 20210811
  Receipt Date: 20210811
  Transmission Date: 20211014
  Serious: Yes (Hospitalization)
  Sender: FDA-Public Use
  Company Number: None

PATIENT
  Age: 52 Year
  Sex: Female

DRUGS (5)
  1. LEVETIRACETA [Concomitant]
     Active Substance: LEVETIRACETAM
  2. TEMAZEPAM. [Concomitant]
     Active Substance: TEMAZEPAM
  3. PROCHLORPER [Concomitant]
  4. ZARXIO [Suspect]
     Active Substance: FILGRASTIM-SNDZ
     Indication: BREAST CANCER
     Dosage: ?          OTHER STRENGTH:480 MCG/0.8ML;?
     Route: 058
     Dates: start: 20210715
  5. SERTRALINE [Concomitant]
     Active Substance: SERTRALINE HYDROCHLORIDE

REACTIONS (1)
  - Laboratory test abnormal [None]

NARRATIVE: CASE EVENT DATE: 20210810
